FAERS Safety Report 19656353 (Version 1)
Quarter: 2021Q3

REPORT INFORMATION
  Report Type: Spontaneous
  Country: US (occurrence: US)
  Receive Date: 20210804
  Receipt Date: 20210804
  Transmission Date: 20211014
  Serious: Yes (Hospitalization)
  Sender: FDA-Public Use
  Company Number: None

PATIENT
  Sex: Male

DRUGS (3)
  1. PREDNISONE. [Suspect]
     Active Substance: PREDNISONE
     Indication: PROSTATE CANCER
     Route: 048
     Dates: start: 20180601
  2. ABIRATERONE. [Suspect]
     Active Substance: ABIRATERONE ACETATE
     Indication: PROSTATE CANCER
     Dosage: ?          OTHER FREQUENCY:4 TABLETS DAILY;?
     Route: 048
     Dates: start: 20200722
  3. ABIRATERONE 250MG [Concomitant]
     Active Substance: ABIRATERONE
     Dates: start: 20200722

REACTIONS (4)
  - Muscle strength abnormal [None]
  - Urinary tract infection [None]
  - Pneumonia bacterial [None]
  - Sepsis [None]
